FAERS Safety Report 4907908-9 (Version None)
Quarter: 2006Q1

REPORT INFORMATION
  Report Type: 
  Country: None (occurrence: None)
  Receive Date: 20060210
  Receipt Date: 20041217
  Transmission Date: 20060701
  Serious: No
  Sender: FDA-Public Use
  Company Number: US-BRISTOL-MYERS SQUIBB COMPANY-12811170

PATIENT
  Sex: Male

DRUGS (2)
  1. ULTRAVATE [Suspect]
     Indication: DERMATITIS ATOPIC
     Dosage: NUMBER OF DOSAGES:  TWO OR THREE TIMES DAILY
     Route: 061
  2. ULTRAVATE [Suspect]
     Indication: FOOD ALLERGY
     Dosage: NUMBER OF DOSAGES:  TWO OR THREE TIMES DAILY
     Route: 061

REACTIONS (3)
  - BLISTER [None]
  - DRUG INEFFECTIVE [None]
  - SKIN DISORDER [None]
